FAERS Safety Report 7908859-8 (Version None)
Quarter: 2011Q4

REPORT INFORMATION
  Report Type: 
  Country: None (occurrence: None)
  Receive Date: 20111111
  Receipt Date: 20111102
  Transmission Date: 20120403
  Serious: Yes (Other)
  Sender: FDA-Public Use
  Company Number: US-BAYER-2010-009164

PATIENT
  Age: 32 Year
  Sex: Female
  Weight: 95 kg

DRUGS (5)
  1. YAZ [Suspect]
     Indication: CONTRACEPTION
  2. YAZ [Suspect]
     Indication: ACNE
     Dosage: UNK
     Dates: start: 20071101, end: 20071201
  3. METHYLPREDNISOLONE [Concomitant]
     Indication: COUGH
  4. SULFAMETHOXAZOLE AND TRIMETHOPRIM [Concomitant]
  5. PROMETHAZINE - CODEINE [CODEINE PHOSPHATE,PROMETHAZINE HYDROCHLORI [Concomitant]
     Indication: COUGH

REACTIONS (7)
  - THROMBOPHLEBITIS SUPERFICIAL [None]
  - DEEP VEIN THROMBOSIS [None]
  - MENTAL DISORDER [None]
  - OEDEMA PERIPHERAL [None]
  - PAIN [None]
  - PAIN IN EXTREMITY [None]
  - INJURY [None]
